FAERS Safety Report 8562608-1 (Version None)
Quarter: 2012Q3

REPORT INFORMATION
  Report Type: 
  Country: None (occurrence: None)
  Receive Date: 20120802
  Receipt Date: 20120710
  Transmission Date: 20120928
  Serious: No
  Sender: FDA-Public Use
  Company Number: US-AMGEN-USASP2012042649

PATIENT
  Age: 69 Year
  Sex: Male

DRUGS (3)
  1. PLAQUENIL [Concomitant]
     Dosage: UNK
     Dates: start: 20080101
  2. ENBREL [Suspect]
     Indication: RHEUMATOID ARTHRITIS
     Dosage: 50 MG, QWK
     Dates: start: 20120627
  3. METHOTREXATE [Concomitant]
     Dosage: 1 MG, UNK
     Dates: start: 20060101

REACTIONS (1)
  - DRUG EFFECT DECREASED [None]
